FAERS Safety Report 19888315 (Version 1)
Quarter: 2021Q3

REPORT INFORMATION
  Report Type: Spontaneous
  Country: FR (occurrence: FR)
  Receive Date: 20210927
  Receipt Date: 20210927
  Transmission Date: 20211014
  Serious: Yes (Other)
  Sender: FDA-Public Use
  Company Number: FR-MYLANLABS-2021M1065072

PATIENT
  Age: 56 Year
  Sex: Female

DRUGS (1)
  1. CLOMIPRAMINE MYLAN [Suspect]
     Active Substance: CLOMIPRAMINE
     Indication: DEPRESSION
     Dosage: 100 MILLIGRAM, QD
     Route: 048

REACTIONS (1)
  - Burn oral cavity [Recovered/Resolved]

NARRATIVE: CASE EVENT DATE: 20210603
